FAERS Safety Report 4495450-1 (Version None)
Quarter: 2004Q4

REPORT INFORMATION
  Report Type: 
  Country: None (occurrence: None)
  Receive Date: 20041108
  Receipt Date: 20041025
  Transmission Date: 20050328
  Serious: Yes (Death, Other)
  Sender: FDA-Public Use
  Company Number: 200418206US

PATIENT
  Sex: Female

DRUGS (2)
  1. AMARYL [Suspect]
     Dosage: DOSE: UNK
     Dates: start: 20030506, end: 20030507
  2. REMINYL [Suspect]
     Indication: DEMENTIA ALZHEIMER'S TYPE
     Dosage: DOSE: UNK

REACTIONS (6)
  - BLOOD GLUCOSE DECREASED [None]
  - COMA [None]
  - CONVULSION [None]
  - DYSPNOEA [None]
  - MEDICATION ERROR [None]
  - VOMITING [None]
